FAERS Safety Report 20542360 (Version 2)
Quarter: 2022Q1

REPORT INFORMATION
  Report Type: Spontaneous
  Country: AR (occurrence: AR)
  Receive Date: 20220302
  Receipt Date: 20220316
  Transmission Date: 20220423
  Serious: Yes (Hospitalization)
  Sender: FDA-Public Use
  Company Number: AR-NOVARTISPH-NVSC2022AR049509

PATIENT
  Age: 60 Year
  Sex: Female

DRUGS (2)
  1. CALCIUM CARBONATE\CALCIUM GLUCONATE [Suspect]
     Active Substance: CALCIUM CARBONATE\CALCIUM GLUCONATE
     Indication: Hypocalcaemia
     Dosage: 1 DOSAGE FORM (1000 MG / 1.75 G / 2.263 G.), QD
     Route: 048
     Dates: start: 202110, end: 202111
  2. CALCIUM CARBONATE\CALCIUM GLUCONATE [Suspect]
     Active Substance: CALCIUM CARBONATE\CALCIUM GLUCONATE
     Indication: Hypoparathyroidism
     Dosage: 1 DOSAGE FORM (1000 MG / 1.75 G / 2.263 G.), QD
     Route: 065
     Dates: end: 202112

REACTIONS (5)
  - Calcium deficiency [Recovering/Resolving]
  - Asthenia [Recovering/Resolving]
  - Paraesthesia [Recovering/Resolving]
  - Diarrhoea [Recovering/Resolving]
  - Incorrect dose administered [Unknown]

NARRATIVE: CASE EVENT DATE: 20220221
